FAERS Safety Report 4870271-6 (Version None)
Quarter: 2005Q4

REPORT INFORMATION
  Report Type: 
  Country: None (occurrence: None)
  Receive Date: 20051228
  Receipt Date: 20051215
  Transmission Date: 20060501
  Serious: Yes (Hospitalization)
  Sender: FDA-Public Use
  Company Number: FR200512002461

PATIENT
  Age: 60 Year
  Sex: Female

DRUGS (6)
  1. EVISTA [Suspect]
     Dosage: 60 MG, DAILY (1/D), ORAL
     Route: 048
     Dates: start: 20030101, end: 20051115
  2. ZOCOR [Concomitant]
  3. ART 50 (DIACEREIN) [Concomitant]
  4. ASPEGIC 1000 [Concomitant]
  5. IBUPROFEN [Concomitant]
  6. HARPAGESIC (HARPAGOPHYTUM PROCUMBENS) [Concomitant]

REACTIONS (3)
  - FLATULENCE [None]
  - HEADACHE [None]
  - HEPATITIS [None]
